FAERS Safety Report 14781590 (Version 2)
Quarter: 2018Q2

REPORT INFORMATION
  Report Type: Spontaneous
  Country: US (occurrence: US)
  Receive Date: 20180420
  Receipt Date: 20180522
  Transmission Date: 20180711
  Serious: No
  Sender: FDA-Public Use
  Company Number: US-HETERO CORPORATE-HET2018US00334

PATIENT
  Sex: Female

DRUGS (2)
  1. VALSARTAN. [Suspect]
     Active Substance: VALSARTAN
     Indication: BLOOD PRESSURE MEASUREMENT
     Dosage: 80 MG
     Route: 065
  2. VALSARTAN. [Suspect]
     Active Substance: VALSARTAN
     Dosage: 80 MG, BID
     Route: 065

REACTIONS (1)
  - Drug ineffective [Unknown]
